FAERS Safety Report 7022528-0 (Version None)
Quarter: 2010Q3

REPORT INFORMATION
  Report Type: 
  Country: None (occurrence: None)
  Receive Date: 20100930
  Receipt Date: 20100924
  Transmission Date: 20110219
  Serious: Yes (Other)
  Sender: FDA-Public Use
  Company Number: GR-PFIZER INC-2010121474

PATIENT
  Sex: Female

DRUGS (1)
  1. MEDROL [Suspect]
     Dosage: 37.5 MG, UNK
     Route: 048
     Dates: start: 20100101, end: 20100923

REACTIONS (2)
  - ASTHENIA [None]
  - VISION BLURRED [None]
